FAERS Safety Report 10442232 (Version 1)
Quarter: 2014Q3

REPORT INFORMATION
  Report Type: Spontaneous
  Country: CA (occurrence: CA)
  Receive Date: 20140909
  Receipt Date: 20140909
  Transmission Date: 20150326
  Serious: Yes (Other)
  Sender: FDA-Public Use
  Company Number: CA-PFIZER INC-2014247557

PATIENT
  Age: 8 Year
  Sex: Male

DRUGS (8)
  1. CYCLOPHOSPHAMIDE. [Concomitant]
     Active Substance: CYCLOPHOSPHAMIDE
     Route: 065
  2. REMICADE [Concomitant]
     Active Substance: INFLIXIMAB
     Route: 065
  3. METHYLPREDNISOLONE SODIUM SUCCINATE. [Suspect]
     Active Substance: METHYLPREDNISOLONE SODIUM SUCCINATE
     Dosage: 2 MG/KG, 1X/DAY
  4. CYCLOSPORINE. [Suspect]
     Active Substance: CYCLOSPORINE
     Dosage: 100 MG, 2X/DAY
     Route: 042
  5. CYCLOSPORINE. [Suspect]
     Active Substance: CYCLOSPORINE
     Dosage: 70 MG, 2X/DAY
     Route: 042
  6. CELLCEPT [Suspect]
     Active Substance: MYCOPHENOLATE MOFETIL\MYCOPHENOLATE MOFETIL HYDROCHLORIDE
  7. DACLIZUMAB [Concomitant]
     Active Substance: DACLIZUMAB
     Route: 065
  8. TACROLIMUS. [Concomitant]
     Active Substance: TACROLIMUS
     Route: 065

REACTIONS (15)
  - Ileus [Recovered/Resolved]
  - Intestinal ischaemia [Recovered/Resolved]
  - Drug ineffective [Recovered/Resolved]
  - Acute graft versus host disease in intestine [Recovered/Resolved]
  - Intestinal resection [Recovered/Resolved]
  - Intestinal stenosis [Recovered/Resolved]
  - Intestinal ulcer [Recovered/Resolved]
  - Abdominal cavity drainage [Recovered/Resolved]
  - Abdominal pain [Recovered/Resolved]
  - Gastrointestinal disorder [Recovered/Resolved]
  - Intussusception [Recovered/Resolved]
  - Enteritis [Recovered/Resolved]
  - Diarrhoea haemorrhagic [Recovered/Resolved]
  - Intestinal obstruction [Recovered/Resolved]
  - Mucous stools [Recovered/Resolved]
